FAERS Safety Report 6091538-2 (Version None)
Quarter: 2009Q1

REPORT INFORMATION
  Report Type: 
  Country: None (occurrence: None)
  Receive Date: 20090225
  Receipt Date: 20090218
  Transmission Date: 20090719
  Serious: Yes (Life-Threatening, Hospitalization, Other)
  Sender: FDA-Public Use
  Company Number: PHHY2009BR05911

PATIENT
  Sex: Female
  Weight: 75 kg

DRUGS (3)
  1. METHERGINE [Suspect]
     Dosage: UNK
     Route: 048
     Dates: start: 20090126
  2. METHERGINE [Suspect]
     Dosage: UNK
     Dates: start: 20090126
  3. METHERGINE [Suspect]
     Dosage: 1 DF, TID
     Route: 048
     Dates: start: 20090202

REACTIONS (19)
  - ABASIA [None]
  - ABDOMINAL PAIN [None]
  - ABORTION INDUCED [None]
  - ABORTION SPONTANEOUS [None]
  - BIOPSY [None]
  - COLD SWEAT [None]
  - DRUG DISPENSING ERROR [None]
  - HAEMORRHAGE [None]
  - HALLUCINATION, AUDITORY [None]
  - INTRAUTERINE INFECTION [None]
  - PAIN [None]
  - PRURITUS [None]
  - SHOCK [None]
  - SPINAL ANAESTHESIA [None]
  - UTERINE DILATION AND CURETTAGE [None]
  - UTERINE INJURY [None]
  - UTERINE SPASM [None]
  - VAGINAL DISCHARGE [None]
  - YELLOW SKIN [None]
